FAERS Safety Report 9707052 (Version 3)
Quarter: 2014Q1

REPORT INFORMATION
  Report Type: Spontaneous
  Country: US (occurrence: US)
  Receive Date: 20131125
  Receipt Date: 20140210
  Transmission Date: 20141002
  Serious: No
  Sender: FDA-Public Use
  Company Number: US-PFIZER INC-2013332938

PATIENT
  Age: 53 Year
  Sex: Male
  Weight: 138.32 kg

DRUGS (4)
  1. CHANTIX [Suspect]
     Indication: SMOKING CESSATION THERAPY
     Dosage: 0.5 MG, 1X/DAY
     Route: 048
     Dates: start: 201311, end: 201311
  2. CHANTIX [Suspect]
     Indication: TOBACCO ABUSE
     Dosage: 1 MG, 2X/DAY (1MG BID)
     Route: 048
     Dates: start: 20131106
  3. ALBUTEROL [Concomitant]
     Indication: CHRONIC OBSTRUCTIVE PULMONARY DISEASE
     Dosage: UNK (2 PUFFS 4X/DAY) AS NEEDED
     Dates: start: 20130905
  4. ADVAIR [Concomitant]
     Indication: CHRONIC OBSTRUCTIVE PULMONARY DISEASE
     Dosage: 250/50, UNK, 2X/DAY (1 PUFF )
     Dates: start: 20131106

REACTIONS (2)
  - Flatulence [Not Recovered/Not Resolved]
  - Aerophagia [Unknown]
